FAERS Safety Report 11783181 (Version 1)
Quarter: 2015Q4

REPORT INFORMATION
  Report Type: Spontaneous
  Country: SE (occurrence: SE)
  Receive Date: 20151127
  Receipt Date: 20151127
  Transmission Date: 20160305
  Serious: Yes (Other)
  Sender: FDA-Public Use
  Company Number: SE-VIIV HEALTHCARE LIMITED-SE2015165912

PATIENT
  Age: 66 Year
  Sex: Male

DRUGS (18)
  1. TROMBYL [Concomitant]
     Active Substance: ASPIRIN
  2. BEHEPAN [Concomitant]
     Active Substance: HYDROXOCOBALAMIN
  3. ENALAPRIL ACTAVIS 10 MG TABLETT [Concomitant]
  4. KIVEXA [Suspect]
     Active Substance: ABACAVIR SULFATE\LAMIVUDINE
     Indication: HIV INFECTION
     Dosage: UNK
     Route: 048
     Dates: start: 20060201, end: 20130905
  5. XATRAL OD 10 MG DEPOTTABLETT [Concomitant]
  6. FINASTERID ACTAVIS 5 MG FILMDRAGERAD TABLETT [Concomitant]
  7. FOLACIN 5 MG TABLETT [Concomitant]
  8. SELOKENZOC [Concomitant]
     Active Substance: METOPROLOL SUCCINATE
  9. TRUVADA [Suspect]
     Active Substance: EMTRICITABINE\TENOFOVIR DISOPROXIL FUMARATE
     Indication: HIV INFECTION
     Route: 048
     Dates: start: 20130905
  10. SIMVASTATIN ARROW 40 MG FILMDRAGERAD TABLETT [Concomitant]
  11. KALCIPOS-D FORTE 500 MG/800 IE FILMDRAGERAD TABLETT [Concomitant]
  12. BRICANYL [Concomitant]
     Active Substance: TERBUTALINE SULFATE
  13. VIRAMUNE [Suspect]
     Active Substance: NEVIRAPINE
     Indication: HIV INFECTION
     Route: 048
     Dates: start: 20050804
  14. SPIRIVA [Concomitant]
     Active Substance: TIOTROPIUM BROMIDE MONOHYDRATE
  15. SYMBICORT [Concomitant]
     Active Substance: BUDESONIDE\FORMOTEROL FUMARATE DIHYDRATE
  16. ALVEDON 665 MG TABLETT MED MODIFIERAD FRIS?TTNING [Concomitant]
  17. NASONEX [Concomitant]
     Active Substance: MOMETASONE FUROATE
  18. OMEPRAZOL [Concomitant]
     Active Substance: OMEPRAZOLE

REACTIONS (1)
  - Stress cardiomyopathy [Unknown]

NARRATIVE: CASE EVENT DATE: 20150826
